FAERS Safety Report 7950426-4 (Version None)
Quarter: 2011Q4

REPORT INFORMATION
  Report Type: 
  Country: None (occurrence: None)
  Receive Date: 20111130
  Receipt Date: 20111116
  Transmission Date: 20120403
  Serious: Yes (Hospitalization)
  Sender: FDA-Public Use
  Company Number: US-MYLANLABS-2011S1024140

PATIENT
  Age: 17 Year
  Sex: Female

DRUGS (1)
  1. IBUPROFEN [Suspect]
     Indication: OVERDOSE
     Dosage: FAMILY FOUND A BOTTLE OF IBUPROFEN 800MG IN HER ROOM WITH 70 PILLS (56G) MISSING
     Route: 048

REACTIONS (6)
  - ENCEPHALOPATHY [None]
  - OVERDOSE [None]
  - ATAXIA [None]
  - SEIZURE LIKE PHENOMENA [None]
  - ACIDOSIS [None]
  - HYPERNATRAEMIA [None]
